FAERS Safety Report 16075202 (Version 2)
Quarter: 2019Q2

REPORT INFORMATION
  Report Type: Spontaneous
  Country: US (occurrence: US)
  Receive Date: 20190315
  Receipt Date: 20190620
  Transmission Date: 20190711
  Serious: Yes (Death)
  Sender: FDA-Public Use
  Company Number: US-009507513-1903USA004150

PATIENT
  Age: 63 Year
  Sex: Female

DRUGS (5)
  1. DANTROLENE. [Concomitant]
     Active Substance: DANTROLENE SODIUM
     Indication: HYPERTHERMIA
     Dosage: A LOADING DOSE OF 2.5 MG/KG , TOTAL THREE LOADING DOSED
     Route: 042
  2. SUCCINYLCHOLINE CHLORIDE. [Concomitant]
     Active Substance: SUCCINYLCHOLINE CHLORIDE
     Indication: MUSCLE RELAXANT THERAPY
     Dosage: A DOSE OF 50 MG
  3. VANCOMYCIN [Suspect]
     Active Substance: VANCOMYCIN
     Indication: ESCHERICHIA INFECTION
     Dosage: UNK
  4. PRIMAXIN IV [Suspect]
     Active Substance: CILASTATIN SODIUM\IMIPENEM
     Indication: ESCHERICHIA INFECTION
     Dosage: UNK
  5. NOREPINEPHRINE. [Suspect]
     Active Substance: NOREPINEPHRINE
     Indication: ESCHERICHIA INFECTION
     Dosage: 24 MICROGRAMS/MIN

REACTIONS (1)
  - Drug ineffective [Fatal]
